FAERS Safety Report 16482946 (Version 1)
Quarter: 2019Q2

REPORT INFORMATION
  Report Type: Report from Study
  Country: US (occurrence: US)
  Receive Date: 20190627
  Receipt Date: 20190627
  Transmission Date: 20190711
  Serious: Yes (Other)
  Sender: FDA-Public Use
  Company Number: US-ASTELLAS-2018US041952

PATIENT
  Age: 79 Year
  Sex: Male

DRUGS (2)
  1. ENZALUTAMIDE [Suspect]
     Active Substance: ENZALUTAMIDE
     Indication: PRODUCT USED FOR UNKNOWN INDICATION
     Route: 048
     Dates: start: 201808
  2. LUPRON [Concomitant]
     Active Substance: LEUPROLIDE ACETATE
     Indication: PRODUCT USED FOR UNKNOWN INDICATION
     Dosage: UNK UNK, UNKNOWN FREQ.
     Route: 065

REACTIONS (9)
  - Flushing [Unknown]
  - Hallucination [Unknown]
  - Balance disorder [Unknown]
  - Cataplexy [Unknown]
  - Rib fracture [Unknown]
  - Hyperhidrosis [Unknown]
  - Memory impairment [Unknown]
  - Product dose omission [Unknown]
  - Fall [Unknown]

NARRATIVE: CASE EVENT DATE: 20180924
